FAERS Safety Report 7274241-2 (Version None)
Quarter: 2011Q1

REPORT INFORMATION
  Report Type: 
  Country: None (occurrence: None)
  Receive Date: 20110204
  Receipt Date: 20110126
  Transmission Date: 20110831
  Serious: No
  Sender: FDA-Public Use
  Company Number: US-BIOGENIDEC-2011BI003653

PATIENT
  Age: 18 Year
  Sex: Female

DRUGS (1)
  1. AVONEX [Suspect]
     Indication: MULTIPLE SCLEROSIS
     Route: 030
     Dates: start: 20100801

REACTIONS (7)
  - TREMOR [None]
  - PALPITATIONS [None]
  - GAIT DISTURBANCE [None]
  - HEAD DISCOMFORT [None]
  - DYSPNOEA [None]
  - DIZZINESS [None]
  - PAIN [None]
